FAERS Safety Report 20853453 (Version 1)
Quarter: 2022Q2

REPORT INFORMATION
  Report Type: Spontaneous
  Country: DE (occurrence: DE)
  Receive Date: 20220520
  Receipt Date: 20220520
  Transmission Date: 20220721
  Serious: Yes (Hospitalization, Other)
  Sender: FDA-Public Use
  Company Number: None

PATIENT

DRUGS (1)
  1. CYTOTEC [Suspect]
     Active Substance: MISOPROSTOL
     Indication: Labour induction
     Dosage: 3X HALF A TABLET, THE FIRST TAKEN AT NOON
     Route: 064

REACTIONS (5)
  - Foetal exposure during delivery [Unknown]
  - Arrhythmia neonatal [Unknown]
  - Neonatal hypoxia [Unknown]
  - Blood test abnormal [Recovered/Resolved]
  - Body temperature abnormal [Unknown]

NARRATIVE: CASE EVENT DATE: 20130601
